FAERS Safety Report 4764123-X (Version None)
Quarter: 2005Q3

REPORT INFORMATION
  Report Type: 
  Country: None (occurrence: None)
  Receive Date: 20050908
  Receipt Date: 20050901
  Transmission Date: 20060218
  Serious: Yes (Death, Hospitalization)
  Sender: FDA-Public Use
  Company Number: FR-MERCK-0509FRA00002

PATIENT
  Age: 58 Year
  Sex: Female
  Weight: 56 kg

DRUGS (5)
  1. PRIMAXIN [Suspect]
     Route: 042
     Dates: start: 20050616, end: 20050630
  2. CASPOFUNGIN ACETATE [Suspect]
     Route: 042
     Dates: start: 20050612, end: 20050623
  3. CIPROFLOXACIN HYDROCHLORIDE [Suspect]
     Route: 042
     Dates: start: 20050612, end: 20050630
  4. TEICOPLANIN [Suspect]
     Route: 042
     Dates: start: 20050612, end: 20050630
  5. ENOXAPARIN SODIUM [Suspect]
     Indication: THROMBOSIS PROPHYLAXIS
     Route: 058
     Dates: end: 20050629

REACTIONS (3)
  - CARDIOPULMONARY FAILURE [None]
  - HISTIOCYTOSIS HAEMATOPHAGIC [None]
  - THROMBOCYTOPENIA [None]
